FAERS Safety Report 18073592 (Version 1)
Quarter: 2020Q3

REPORT INFORMATION
  Report Type: Spontaneous
  Country: IN (occurrence: IN)
  Receive Date: 20200727
  Receipt Date: 20200727
  Transmission Date: 20201103
  Serious: Yes (Other)
  Sender: FDA-Public Use
  Company Number: IN-GLENMARK PHARMACEUTICALS-2019GMK044714

PATIENT

DRUGS (3)
  1. TELMA 40 [Suspect]
     Active Substance: TELMISARTAN
     Dosage: 40 MG, OD (CURRENT BATCH)
     Route: 048
     Dates: start: 2019
  2. APREMILAST [Suspect]
     Active Substance: APREMILAST
     Indication: PRODUCT USED FOR UNKNOWN INDICATION
     Dosage: UNK
     Route: 065
  3. TELMA 40 [Suspect]
     Active Substance: TELMISARTAN
     Indication: BLOOD PRESSURE ABNORMAL
     Dosage: 40 MG, OD (LAST 8?9 YEARS); (FROM A DIFFERENT STRIP)
     Route: 048

REACTIONS (4)
  - Blood pressure fluctuation [Unknown]
  - Drug ineffective [Unknown]
  - Ulcer haemorrhage [Unknown]
  - Product quality issue [Unknown]

NARRATIVE: CASE EVENT DATE: 2019
